FAERS Safety Report 10025582 (Version 1)
Quarter: 2014Q1

REPORT INFORMATION
  Report Type: Spontaneous
  Country: TW (occurrence: TW)
  Receive Date: 20140320
  Receipt Date: 20140320
  Transmission Date: 20141002
  Serious: Yes (Other)
  Sender: FDA-Public Use
  Company Number: TW-ACTAVIS-2014-04974

PATIENT
  Age: 17 Year
  Sex: Female

DRUGS (2)
  1. QUETIAPINE [Suspect]
     Indication: SCHIZOPHRENIA
     Dosage: 800 MG, DAILY
     Route: 065
  2. ESTAZOLAM [Concomitant]
     Indication: SCHIZOPHRENIA
     Dosage: 1-2 MG, DAILY
     Route: 065

REACTIONS (1)
  - Theft [Recovered/Resolved]
